FAERS Safety Report 16455663 (Version 3)
Quarter: 2021Q2

REPORT INFORMATION
  Report Type: Spontaneous
  Country: US (occurrence: US)
  Receive Date: 20190620
  Receipt Date: 20210420
  Transmission Date: 20210716
  Serious: No
  Sender: FDA-Public Use
  Company Number: US-AMGEN-USASP2019096087

PATIENT
  Age: 64 Year
  Sex: Male

DRUGS (2)
  1. ENBREL [Suspect]
     Active Substance: ETANERCEPT
     Indication: ARTHROPATHY
     Dosage: UNK
     Route: 065
     Dates: start: 2012, end: 201601
  2. ENBREL [Suspect]
     Active Substance: ETANERCEPT
     Indication: C-REACTIVE PROTEIN INCREASED
     Dosage: UNK
     Route: 065
     Dates: start: 201605

REACTIONS (2)
  - Drug ineffective [Unknown]
  - Intentional product misuse [Unknown]
